FAERS Safety Report 10547266 (Version 3)
Quarter: 2014Q4

REPORT INFORMATION
  Report Type: Spontaneous
  Country: GB (occurrence: GB)
  Receive Date: 20141028
  Receipt Date: 20141206
  Transmission Date: 20150529
  Serious: Yes (Other)
  Sender: FDA-Public Use
  Company Number: GB-ABBVIE-14K-167-1298133-00

PATIENT
  Sex: Male
  Weight: 72 kg

DRUGS (2)
  1. LISINOPRIL. [Concomitant]
     Active Substance: LISINOPRIL
     Indication: PRODUCT USED FOR UNKNOWN INDICATION
     Route: 048
  2. HUMIRA [Suspect]
     Active Substance: ADALIMUMAB
     Indication: PSORIASIS
     Route: 058
     Dates: start: 201407

REACTIONS (8)
  - Eczema [Not Recovered/Not Resolved]
  - Excoriation [Unknown]
  - Skin irritation [Unknown]
  - Dry skin [Unknown]
  - Flushing [Unknown]
  - Oral herpes [Recovered/Resolved]
  - Platelet aggregation [Unknown]
  - Dermatitis [Unknown]
